FAERS Safety Report 25211111 (Version 1)
Quarter: 2025Q2

REPORT INFORMATION
  Report Type: Spontaneous
  Country: CN (occurrence: CN)
  Receive Date: 20250417
  Receipt Date: 20250417
  Transmission Date: 20250716
  Serious: Yes (Hospitalization)
  Sender: GENUS LIFESCIENCES
  Company Number: CN-Genus_Lifesciences-USA-ALL0580202500124

PATIENT
  Age: 24 Year
  Sex: Male
  Weight: 52 kg

DRUGS (2)
  1. CHLORPROMAZINE HYDROCHLORIDE [Suspect]
     Active Substance: CHLORPROMAZINE HYDROCHLORIDE
     Indication: Schizophrenia
     Route: 048
     Dates: end: 2025
  2. CLOZAPINE [Suspect]
     Active Substance: CLOZAPINE
     Indication: Schizophrenia
     Route: 048
     Dates: start: 2025

REACTIONS (7)
  - Seizure [Recovering/Resolving]
  - Paranoia [Recovering/Resolving]
  - Lethargy [Recovering/Resolving]
  - Apathy [Recovering/Resolving]
  - Sinus tachycardia [Recovering/Resolving]
  - Disturbance in attention [Recovering/Resolving]
  - Salivary hypersecretion [Recovering/Resolving]

NARRATIVE: CASE EVENT DATE: 20250101
